FAERS Safety Report 7220474-0 (Version None)
Quarter: 2011Q1

REPORT INFORMATION
  Report Type: 
  Country: None (occurrence: None)
  Receive Date: 20110111
  Receipt Date: 20110104
  Transmission Date: 20110831
  Serious: Yes (Hospitalization, Other)
  Sender: FDA-Public Use
  Company Number: US-US-EMD SERONO, INC.-235022J09USA

PATIENT
  Sex: Male

DRUGS (3)
  1. UNSPECIFIED MEDICATION [Concomitant]
     Indication: HYPERTENSION
  2. UNSPECIFIED MEDICATION [Concomitant]
     Indication: BLOOD CHOLESTEROL INCREASED
  3. REBIF [Suspect]
     Indication: MULTIPLE SCLEROSIS
     Route: 058
     Dates: start: 20070101, end: 20101001

REACTIONS (9)
  - MIGRAINE [None]
  - SUICIDAL BEHAVIOUR [None]
  - DEPRESSED MOOD [None]
  - INSOMNIA [None]
  - FEELING OF BODY TEMPERATURE CHANGE [None]
  - INTERVERTEBRAL DISC PROTRUSION [None]
  - INJECTION SITE ERYTHEMA [None]
  - SOMNOLENCE [None]
  - TREMOR [None]
